FAERS Safety Report 17280069 (Version 1)
Quarter: 2020Q1

REPORT INFORMATION
  Report Type: Spontaneous
  Country: US (occurrence: US)
  Receive Date: 20200117
  Receipt Date: 20200117
  Transmission Date: 20200409
  Serious: No
  Sender: FDA-Public Use
  Company Number: US-JNJFOC-20200108254

PATIENT
  Age: 44 Year
  Sex: Female

DRUGS (8)
  1. REMICADE [Concomitant]
     Active Substance: INFLIXIMAB
     Indication: RECTAL HAEMORRHAGE
  2. BENADRYL [Suspect]
     Active Substance: DIPHENHYDRAMINE HYDROCHLORIDE
     Indication: PROCTITIS ULCERATIVE
     Dosage: 10:21 AM
     Route: 065
     Dates: start: 20191107
  3. BENADRYL [Suspect]
     Active Substance: DIPHENHYDRAMINE HYDROCHLORIDE
     Indication: RECTAL HAEMORRHAGE
  4. REMICADE [Concomitant]
     Active Substance: INFLIXIMAB
     Indication: PROCTITIS ULCERATIVE
     Dosage: 10:57 AM
     Route: 065
     Dates: start: 20191107
  5. TYLENOL [Suspect]
     Active Substance: ACETAMINOPHEN
     Indication: PROCTITIS ULCERATIVE
     Dosage: 10:21 AM
     Route: 065
     Dates: start: 20191107
  6. SODIUM CHLORIDE. [Concomitant]
     Active Substance: SODIUM CHLORIDE
     Indication: PROCTITIS ULCERATIVE
     Dosage: 01:28 PM
     Route: 065
     Dates: start: 20191107
  7. SODIUM CHLORIDE. [Concomitant]
     Active Substance: SODIUM CHLORIDE
     Indication: RECTAL HAEMORRHAGE
  8. TYLENOL [Suspect]
     Active Substance: ACETAMINOPHEN
     Indication: RECTAL HAEMORRHAGE

REACTIONS (2)
  - Off label use [Unknown]
  - Product use in unapproved indication [Unknown]

NARRATIVE: CASE EVENT DATE: 20191107
